FAERS Safety Report 19154107 (Version 1)
Quarter: 2021Q2

REPORT INFORMATION
  Report Type: Spontaneous
  Country: US (occurrence: US)
  Receive Date: 20210419
  Receipt Date: 20210419
  Transmission Date: 20210717
  Serious: Yes (Hospitalization, Other)
  Sender: FDA-Public Use
  Company Number: NVSC2021US077592

PATIENT
  Sex: Female

DRUGS (1)
  1. COSENTYX [Suspect]
     Active Substance: SECUKINUMAB
     Indication: PRODUCT USED FOR UNKNOWN INDICATION
     Dosage: 300 MG, QMO (TWO SENSOREADY PENS)
     Route: 065

REACTIONS (9)
  - Arthritis [Unknown]
  - Injection site bruising [Unknown]
  - Accidental exposure to product [Unknown]
  - Device malfunction [Unknown]
  - Injection site haematoma [Unknown]
  - Injection site haemorrhage [Unknown]
  - Device dispensing error [Unknown]
  - Device issue [Unknown]
  - Incorrect dose administered [Unknown]
